FAERS Safety Report 13996542 (Version 1)
Quarter: 2017Q3

REPORT INFORMATION
  Report Type: Spontaneous
  Country: US (occurrence: US)
  Receive Date: 20170921
  Receipt Date: 20170921
  Transmission Date: 20171128
  Serious: No
  Sender: FDA-Public Use
  Company Number: US-ASTRAZENECA-2017SE93378

PATIENT
  Age: 24229 Day
  Sex: Female
  Weight: 94.8 kg

DRUGS (2)
  1. BYDUREON [Suspect]
     Active Substance: EXENATIDE
     Indication: GLYCOSYLATED HAEMOGLOBIN INCREASED
     Route: 058
     Dates: start: 20170903
  2. BYDUREON [Suspect]
     Active Substance: EXENATIDE
     Indication: DIABETES MELLITUS
     Route: 058
     Dates: start: 20170903

REACTIONS (4)
  - Injection site swelling [Recovering/Resolving]
  - Medication error [Not Recovered/Not Resolved]
  - Injection site bruising [Recovering/Resolving]
  - Injection site mass [Recovering/Resolving]

NARRATIVE: CASE EVENT DATE: 20170903
